FAERS Safety Report 6140521-7 (Version None)
Quarter: 2009Q1

REPORT INFORMATION
  Report Type: 
  Country: None (occurrence: None)
  Receive Date: 20090331
  Receipt Date: 20090326
  Transmission Date: 20090719
  Serious: Yes (Other)
  Sender: FDA-Public Use
  Company Number: A0775551A

PATIENT
  Age: 70 Year
  Sex: Male

DRUGS (2)
  1. CALCIUM CARBONATE TABLET ASSORTED FRUIT (CALCIUM CARBONATE) [Suspect]
     Indication: DYSPEPSIA
     Dosage: ORAL
     Route: 048
     Dates: start: 20090325, end: 20090325
  2. ESOMEPRAZOLE MAGNESIUM [Concomitant]

REACTIONS (5)
  - DYSPNOEA [None]
  - FLATULENCE [None]
  - HYPERSENSITIVITY [None]
  - LUNG DISORDER [None]
  - PAIN [None]
